FAERS Safety Report 9938138 (Version 2)
Quarter: 2014Q1

REPORT INFORMATION
  Report Type: Report from Study
  Country: US (occurrence: US)
  Receive Date: 20140303
  Receipt Date: 20140306
  Transmission Date: 20141002
  Serious: Yes (Other)
  Sender: FDA-Public Use
  Company Number: US-ROCHE-1346693

PATIENT
  Sex: Female

DRUGS (7)
  1. AVASTIN [Suspect]
     Indication: AGE-RELATED MACULAR DEGENERATION
     Route: 050
     Dates: start: 20110915
  2. AVASTIN [Suspect]
     Indication: AGE-RELATED MACULAR DEGENERATION
  3. LUCENTIS [Suspect]
     Indication: AGE-RELATED MACULAR DEGENERATION
     Route: 050
  4. LUCENTIS [Suspect]
     Indication: AGE-RELATED MACULAR DEGENERATION
  5. IBUPROFEN [Concomitant]
     Route: 048
  6. DOXYCYCLINE [Concomitant]
     Route: 048
  7. VIGAMOX [Concomitant]
     Dosage: OS
     Route: 047

REACTIONS (7)
  - Eye infection [Unknown]
  - Corneal infection [Unknown]
  - Eye pain [Unknown]
  - Visual acuity reduced [Unknown]
  - Corneal abrasion [Unknown]
  - Retinal haemorrhage [Unknown]
  - Retinal haemorrhage [Unknown]
